FAERS Safety Report 25177805 (Version 2)
Quarter: 2025Q2

REPORT INFORMATION
  Report Type: Report from Study
  Country: CA (occurrence: CA)
  Receive Date: 20250409
  Receipt Date: 20250528
  Transmission Date: 20250717
  Serious: Yes (Disabling, Other)
  Sender: BIOCON
  Company Number: CA-MIMS-BCONMC-13203

PATIENT

DRUGS (2)
  1. HULIO [Suspect]
     Active Substance: ADALIMUMAB-FKJP
     Indication: Product used for unknown indication
     Route: 065
     Dates: start: 20241021
  2. HULIO [Suspect]
     Active Substance: ADALIMUMAB-FKJP
     Route: 058

REACTIONS (2)
  - Loss of personal independence in daily activities [Unknown]
  - Surgery [Unknown]
